FAERS Safety Report 8052129-7 (Version None)
Quarter: 2012Q1

REPORT INFORMATION
  Report Type: 
  Country: None (occurrence: None)
  Receive Date: 20120118
  Receipt Date: 20120113
  Transmission Date: 20120608
  Serious: No
  Sender: FDA-Public Use
  Company Number: US-PFIZER INC-2012010813

PATIENT
  Sex: Female
  Weight: 58.957 kg

DRUGS (6)
  1. PLAVIX [Concomitant]
  2. COUMADIN [Concomitant]
     Dosage: UNK
  3. DIGOXIN [Concomitant]
     Dosage: UNK
  4. ASPIRIN [Concomitant]
     Dosage: UNK
  5. TIKOSYN [Suspect]
     Indication: ATRIAL FIBRILLATION
     Dosage: 0.25 MG, 2X/DAY
     Dates: start: 20100101
  6. LISINOPRIL [Concomitant]
     Indication: HYPERTENSION
     Dosage: UNK

REACTIONS (4)
  - NAUSEA [None]
  - HAEMOGLOBIN INCREASED [None]
  - HAEMATOCRIT INCREASED [None]
  - HEADACHE [None]
